FAERS Safety Report 25625778 (Version 2)
Quarter: 2025Q3

REPORT INFORMATION
  Report Type: Report from Study
  Country: US (occurrence: US)
  Receive Date: 20250731
  Receipt Date: 20250806
  Transmission Date: 20251021
  Serious: Yes (Life-Threatening, Other)
  Sender: CHIESI
  Company Number: US-CHIESI-2025CHF05240

PATIENT
  Sex: Male

DRUGS (3)
  1. OCTREOTIDE [Suspect]
     Active Substance: OCTREOTIDE
     Indication: Acromegaly
     Dosage: UNK, BID
     Route: 048
  2. OCTREOTIDE [Suspect]
     Active Substance: OCTREOTIDE
     Indication: Gigantism
  3. TESTOSTERONE [Suspect]
     Active Substance: TESTOSTERONE
     Indication: Product used for unknown indication
     Dosage: UNK, BID
     Route: 065

REACTIONS (3)
  - Brain neoplasm [Not Recovered/Not Resolved]
  - Abdominal distension [Not Recovered/Not Resolved]
  - Fatigue [Not Recovered/Not Resolved]
